FAERS Safety Report 10803999 (Version 1)
Quarter: 2015Q1

REPORT INFORMATION
  Report Type: Spontaneous
  Country: FR (occurrence: FR)
  Receive Date: 20150217
  Receipt Date: 20150217
  Transmission Date: 20150721
  Serious: Yes (Hospitalization, Other)
  Sender: FDA-Public Use
  Company Number: FR-ALEXION PHARMACEUTICALS INC-A201500423

PATIENT

DRUGS (2)
  1. SOLIRIS [Suspect]
     Active Substance: ECULIZUMAB
     Indication: PAROXYSMAL NOCTURNAL HAEMOGLOBINURIA
     Dosage: UNK
     Route: 042
     Dates: start: 201212
  2. SOLIRIS [Suspect]
     Active Substance: ECULIZUMAB
     Dosage: UNK
     Route: 042
     Dates: start: 20150204

REACTIONS (9)
  - Haemoglobinuria [Unknown]
  - Inappropriate schedule of drug administration [Unknown]
  - Haemolysis [Not Recovered/Not Resolved]
  - Weight decreased [Unknown]
  - Blood lactate dehydrogenase increased [Unknown]
  - Reticulocyte count abnormal [Unknown]
  - Haemolytic anaemia [Unknown]
  - Haemoglobinuria [Unknown]
  - Haemoglobin abnormal [Unknown]

NARRATIVE: CASE EVENT DATE: 2015
